FAERS Safety Report 22193630 (Version 2)
Quarter: 2023Q2

REPORT INFORMATION
  Report Type: Spontaneous
  Country: US (occurrence: US)
  Receive Date: 20230410
  Receipt Date: 20230424
  Transmission Date: 20230721
  Serious: Yes (Other)
  Sender: FDA-Public Use
  Company Number: US-DSJP-DSU-2023-113499

PATIENT
  Age: 51 Year
  Sex: Female
  Weight: 61.4 kg

DRUGS (8)
  1. ENHERTU [Suspect]
     Active Substance: FAM-TRASTUZUMAB DERUXTECAN-NXKI
     Indication: Breast cancer metastatic
     Dosage: 5.4 MG/KG, ONCE EVERY 3 WK
     Route: 042
     Dates: start: 20230314
  2. ENHERTU [Suspect]
     Active Substance: FAM-TRASTUZUMAB DERUXTECAN-NXKI
     Indication: HER2 positive breast cancer
     Dosage: 4.4 MG/KG, ONCE EVERY 3 WK
     Route: 042
     Dates: start: 20230404, end: 20230414
  3. EMEND [Concomitant]
     Active Substance: APREPITANT
     Indication: Premedication
     Dosage: UNK, ONCE EVERY 3 WK
     Route: 042
     Dates: start: 20230314
  4. EMEND [Concomitant]
     Active Substance: APREPITANT
     Dosage: UNK, ONCE EVERY 3 WK
     Route: 042
     Dates: start: 20230404
  5. ALOXI [Concomitant]
     Active Substance: PALONOSETRON HYDROCHLORIDE
     Indication: Premedication
     Dosage: UNK, ONCE EVERY 3 WK
     Route: 042
     Dates: start: 20230314
  6. ALOXI [Concomitant]
     Active Substance: PALONOSETRON HYDROCHLORIDE
     Dosage: UNK, ONCE EVERY 3 WK
     Route: 042
     Dates: start: 20230404
  7. DECADRON [Concomitant]
     Active Substance: DEXAMETHASONE
     Indication: Premedication
     Dosage: UNK, ONCE EVERY 3 WK
     Route: 042
     Dates: start: 20230314
  8. DECADRON [Concomitant]
     Active Substance: DEXAMETHASONE
     Dosage: UNK, ONCE EVERY 3 WK
     Route: 042
     Dates: start: 20230404

REACTIONS (4)
  - Neutropenia [Unknown]
  - Thrombocytopenia [Unknown]
  - Liver function test increased [Recovered/Resolved]
  - Diarrhoea [Not Recovered/Not Resolved]

NARRATIVE: CASE EVENT DATE: 20230404
